FAERS Safety Report 10224592 (Version 2)
Quarter: 2014Q2

REPORT INFORMATION
  Report Type: Spontaneous
  Country: US (occurrence: US)
  Receive Date: 20140609
  Receipt Date: 20140613
  Transmission Date: 20141212
  Serious: Yes (Hospitalization, Other)
  Sender: FDA-Public Use
  Company Number: US-BAXTER-2014BAX029191

PATIENT
  Sex: Female

DRUGS (1)
  1. DIANEAL LOW CALCIUM [Suspect]
     Indication: RENAL FAILURE CHRONIC
     Route: 033
     Dates: start: 2010

REACTIONS (6)
  - Skin infection [Recovering/Resolving]
  - Haemoglobin decreased [Recovering/Resolving]
  - Dehydration [Recovered/Resolved]
  - Abdominal pain [Recovering/Resolving]
  - Fall [Recovered/Resolved]
  - Contusion [Recovering/Resolving]
